FAERS Safety Report 18694570 (Version 1)
Quarter: 2020Q4

REPORT INFORMATION
  Report Type: Spontaneous
  Country: US (occurrence: US)
  Receive Date: 20201231
  Receipt Date: 20201231
  Transmission Date: 20210114
  Serious: Yes (Hospitalization)
  Sender: FDA-Public Use
  Company Number: None

PATIENT
  Age: 52 Year
  Sex: Female
  Weight: 166 kg

DRUGS (9)
  1. JARDIANCE [Suspect]
     Active Substance: EMPAGLIFLOZIN
     Indication: DIABETES MELLITUS
     Route: 048
  2. METFORMIN [Concomitant]
     Active Substance: METFORMIN HYDROCHLORIDE
  3. ATORVASTATIN [Concomitant]
     Active Substance: ATORVASTATIN
  4. ASPIRIN LOW DOSE [Concomitant]
     Active Substance: ASPIRIN
  5. VICTOZA [Concomitant]
     Active Substance: LIRAGLUTIDE
  6. METOPROLOL. [Concomitant]
     Active Substance: METOPROLOL
  7. ZYRTEC [Concomitant]
     Active Substance: CETIRIZINE HYDROCHLORIDE
  8. VITAMIN D3 [Concomitant]
     Active Substance: CHOLECALCIFEROL
  9. OTEZLA [Concomitant]
     Active Substance: APREMILAST

REACTIONS (6)
  - Impaired work ability [None]
  - Necrotising fasciitis [None]
  - Genital erythema [None]
  - Pain in extremity [None]
  - Gait inability [None]
  - Perineal necrosis [None]

NARRATIVE: CASE EVENT DATE: 20201231
